FAERS Safety Report 4320930-9 (Version None)
Quarter: 2004Q1

REPORT INFORMATION
  Report Type: 
  Country: None (occurrence: None)
  Receive Date: 20040318
  Receipt Date: 20040305
  Transmission Date: 20041129
  Serious: Yes (Other)
  Sender: FDA-Public Use
  Company Number: US042289

PATIENT
  Age: 70 Year
  Sex: Female
  Weight: 50.8 kg

DRUGS (1)
  1. ETANERCEPT [Suspect]
     Indication: RHEUMATOID ARTHRITIS
     Dosage: 25 MG, TWICE WEEKLY, SC
     Route: 058
     Dates: start: 19980721, end: 20030625

REACTIONS (2)
  - DIARRHOEA [None]
  - PEMPHIGUS [None]
